FAERS Safety Report 24651471 (Version 1)
Quarter: 2024Q4

REPORT INFORMATION
  Report Type: Spontaneous
  Country: US (occurrence: US)
  Receive Date: 20241122
  Receipt Date: 20241122
  Transmission Date: 20250115
  Serious: No
  Sender: GLAXOSMITHKLINE
  Company Number: US-GSK-US2024AMR142963

PATIENT
  Sex: Female
  Weight: 135 kg

DRUGS (1)
  1. ZEJULA [Suspect]
     Active Substance: NIRAPARIB
     Indication: Ovarian cancer
     Dosage: 200 MG, QD,DAILY AT SAME TIME EVENING
     Route: 048
     Dates: start: 20241022

REACTIONS (2)
  - Back pain [Unknown]
  - Nausea [Unknown]
